FAERS Safety Report 7677318-2 (Version None)
Quarter: 2011Q3

REPORT INFORMATION
  Report Type: 
  Country: None (occurrence: None)
  Receive Date: 20110811
  Receipt Date: 20110728
  Transmission Date: 20111222
  Serious: Yes (Hospitalization, Other)
  Sender: FDA-Public Use
  Company Number: FR-UCBSA-037924

PATIENT
  Sex: Male

DRUGS (5)
  1. KEPPRA [Suspect]
     Route: 048
     Dates: start: 20100101
  2. KEPPRA [Suspect]
     Route: 048
     Dates: start: 20070101, end: 20100201
  3. PREDNISONE [Concomitant]
     Route: 048
  4. FOLIC ACID [Concomitant]
     Route: 048
  5. METHOTREXATE [Concomitant]
     Dosage: 2.5 MG, 5 TABLETS DAILY
     Route: 048

REACTIONS (2)
  - ATRIAL FIBRILLATION [None]
  - DRUG WITHDRAWAL CONVULSIONS [None]
